FAERS Safety Report 4871619-9 (Version None)
Quarter: 2005Q4

REPORT INFORMATION
  Report Type: 
  Country: None (occurrence: None)
  Receive Date: 20051230
  Receipt Date: 20051214
  Transmission Date: 20060501
  Serious: Yes (Hospitalization)
  Sender: FDA-Public Use
  Company Number: DSA_27583_2005

PATIENT
  Age: 54 Year
  Sex: Female

DRUGS (2)
  1. MASDIL RETARD [Suspect]
     Dosage: 120 MG PO
     Route: 048
     Dates: end: 20050130
  2. LOBIVON [Suspect]
     Dosage: 5 MG PO
     Route: 048
     Dates: end: 20050130

REACTIONS (3)
  - CHEST PAIN [None]
  - DIZZINESS [None]
  - NODAL ARRHYTHMIA [None]
